FAERS Safety Report 19955960 (Version 1)
Quarter: 2021Q4

REPORT INFORMATION
  Report Type: Spontaneous
  Country: DE (occurrence: DE)
  Receive Date: 20211014
  Receipt Date: 20211014
  Transmission Date: 20220303
  Serious: Yes (Other)
  Sender: FDA-Public Use
  Company Number: DE-TEVA-2020-DE-1800383

PATIENT
  Sex: Male

DRUGS (1)
  1. BISOPROLOL [Suspect]
     Active Substance: BISOPROLOL
     Indication: Product used for unknown indication
     Dosage: FOR 3 YEARS
     Route: 065

REACTIONS (3)
  - Wound secretion [Not Recovered/Not Resolved]
  - Genital abscess [Not Recovered/Not Resolved]
  - Rash macular [Not Recovered/Not Resolved]
